FAERS Safety Report 8478658-X (Version None)
Quarter: 2012Q2

REPORT INFORMATION
  Report Type: 
  Country: None (occurrence: None)
  Receive Date: 20120621
  Receipt Date: 20120612
  Transmission Date: 20120825
  Serious: Yes (Other)
  Sender: FDA-Public Use
  Company Number: DSA_57945_2012

PATIENT

DRUGS (5)
  1. DEXAMETHASONE [Concomitant]
  2. GRANISETRON [Concomitant]
  3. FLUOROURACIL [Suspect]
     Indication: COLORECTAL CANCER STAGE III
     Dosage: 2400 MG/M2 INTRA-ARTERIAL
     Route: 013
  4. OXALIPLATIN [Suspect]
     Indication: COLORECTAL CANCER STAGE III
     Dosage: 85 MG/M2 EVERY CYCLE INTRA-ARTERIAL
     Route: 013
  5. LEUCOVORIN CALCIUM [Suspect]
     Indication: COLORECTAL CANCER STAGE III
     Dosage: 200 MG/M2 EVERY CYCLE INTRA-ATRERIAL
     Route: 013

REACTIONS (1)
  - ANAEMIA [None]
